FAERS Safety Report 9559853 (Version 1)
Quarter: 2013Q3

REPORT INFORMATION
  Report Type: Spontaneous
  Country: GB (occurrence: GB)
  Receive Date: 20130927
  Receipt Date: 20130927
  Transmission Date: 20140515
  Serious: Yes (Disabling, Other)
  Sender: FDA-Public Use
  Company Number: GB-BAYER-2013-112867

PATIENT
  Age: 24 Year
  Sex: Male

DRUGS (5)
  1. CIPROFLOXACIN [Suspect]
     Indication: LYMPH NODE TUBERCULOSIS
     Dosage: UNK
     Dates: start: 20100101
  2. PREDNISOLONE [Suspect]
     Indication: LYMPH NODE TUBERCULOSIS
     Dosage: UNK
     Dates: start: 20100101, end: 20100101
  3. ISONIAZID [Suspect]
     Indication: LYMPH NODE TUBERCULOSIS
     Dosage: UNK
     Dates: start: 20100101
  4. ETHAMBUTOL [Suspect]
     Indication: LYMPH NODE TUBERCULOSIS
     Dosage: UNK
     Dates: start: 20100101, end: 20100101
  5. RIFATER [Suspect]
     Indication: LYMPH NODE TUBERCULOSIS
     Dosage: UNK
     Dates: start: 20100101, end: 20100101

REACTIONS (4)
  - Neuropathy peripheral [Not Recovered/Not Resolved]
  - Colour blindness [Not Recovered/Not Resolved]
  - Liver function test abnormal [Not Recovered/Not Resolved]
  - Nausea [Not Recovered/Not Resolved]
